FAERS Safety Report 18152770 (Version 26)
Quarter: 2024Q3

REPORT INFORMATION
  Report Type: Spontaneous
  Country: US (occurrence: US)
  Receive Date: 20200814
  Receipt Date: 20240805
  Transmission Date: 20241016
  Serious: Yes (Other)
  Sender: DAIICHI
  Company Number: US-DSJP-DSU-2020-123077

PATIENT
  Age: 56 Year
  Sex: Female

DRUGS (5)
  1. ENHERTU [Suspect]
     Active Substance: FAM-TRASTUZUMAB DERUXTECAN-NXKI
     Indication: Breast cancer metastatic
     Dosage: UNK
     Route: 042
  2. ENHERTU [Suspect]
     Active Substance: FAM-TRASTUZUMAB DERUXTECAN-NXKI
     Indication: HER2 positive breast cancer
     Dosage: UNK
     Route: 042
     Dates: start: 202008, end: 202008
  3. ENHERTU [Suspect]
     Active Substance: FAM-TRASTUZUMAB DERUXTECAN-NXKI
     Dosage: UNK
     Route: 065
     Dates: start: 20230519, end: 20230519
  4. DEXAMETHASONE SODIUM PHOSPHATE [Concomitant]
     Active Substance: DEXAMETHASONE PHOSPHATE\DEXAMETHASONE SODIUM PHOSPHATE
     Indication: Product used for unknown indication
     Dosage: UNK
     Route: 065
  5. RITALIN [Concomitant]
     Active Substance: METHYLPHENIDATE HYDROCHLORIDE
     Indication: Product used for unknown indication
     Route: 065

REACTIONS (32)
  - Haemoglobin increased [Not Recovered/Not Resolved]
  - Non-alcoholic fatty liver [Unknown]
  - Body mass index decreased [Unknown]
  - Somnolence [Unknown]
  - Hypersensitivity [Unknown]
  - Lymphadenopathy [Unknown]
  - Feeling abnormal [Recovering/Resolving]
  - Feeling abnormal [Unknown]
  - Lymphoedema [Unknown]
  - Unevaluable event [Unknown]
  - Hypoaesthesia [Unknown]
  - Hepatic enzyme increased [Unknown]
  - Neuropathy peripheral [Unknown]
  - Weight decreased [Recovered/Resolved]
  - Alopecia [Recovered/Resolved]
  - Headache [Unknown]
  - Weight decreased [Unknown]
  - Muscle spasms [Unknown]
  - Pain in extremity [Unknown]
  - Malaise [Unknown]
  - Weight decreased [Unknown]
  - Fatigue [Unknown]
  - Pyrexia [Recovered/Resolved]
  - Fatigue [Unknown]
  - Nausea [Unknown]
  - Nausea [Unknown]
  - Nausea [Unknown]
  - Polycythaemia [Unknown]
  - Insomnia [Recovered/Resolved]
  - Influenza [Unknown]
  - Drug ineffective [Unknown]
  - Product dose omission issue [Unknown]

NARRATIVE: CASE EVENT DATE: 20201209
